FAERS Safety Report 20539301 (Version 1)
Quarter: 2022Q1

REPORT INFORMATION
  Report Type: Spontaneous
  Country: US (occurrence: US)
  Receive Date: 20220302
  Receipt Date: 20220302
  Transmission Date: 20220423
  Serious: No
  Sender: FDA-Public Use
  Company Number: US-TEVA-2022-US-2004876

PATIENT
  Sex: Female

DRUGS (1)
  1. LORAZEPAM [Suspect]
     Active Substance: LORAZEPAM
     Indication: Insomnia
     Route: 065

REACTIONS (3)
  - Therapeutic product effect incomplete [Unknown]
  - Product use in unapproved indication [Unknown]
  - Product prescribing error [Unknown]
